FAERS Safety Report 17892279 (Version 1)
Quarter: 2020Q2

REPORT INFORMATION
  Report Type: Report from Study
  Country: US (occurrence: US)
  Receive Date: 20200612
  Receipt Date: 20200612
  Transmission Date: 20200714
  Serious: Yes (Hospitalization)
  Sender: FDA-Public Use
  Company Number: US-ACTELION-A-US2018-184088

PATIENT
  Sex: Female

DRUGS (1)
  1. TRACLEER [Suspect]
     Active Substance: BOSENTAN
     Indication: PULMONARY ARTERIAL HYPERTENSION
     Dosage: 125 MG, BID
     Route: 048
     Dates: start: 20100816

REACTIONS (7)
  - Oropharyngeal pain [Unknown]
  - Sinusitis [Unknown]
  - Urinary tract infection [Unknown]
  - Diverticulitis [Recovering/Resolving]
  - Abdominal pain [Recovering/Resolving]
  - Hospitalisation [Unknown]
  - Cough [Unknown]
